FAERS Safety Report 5695894-6 (Version None)
Quarter: 2008Q2

REPORT INFORMATION
  Report Type: 
  Country: None (occurrence: None)
  Receive Date: 20080407
  Receipt Date: 20080327
  Transmission Date: 20081010
  Serious: Yes (Hospitalization)
  Sender: FDA-Public Use
  Company Number: US-JNJFOC-20061203181

PATIENT
  Sex: Female
  Weight: 70.4 kg

DRUGS (2)
  1. REMICADE [Suspect]
     Route: 042
  2. REMICADE [Suspect]
     Indication: CROHN'S DISEASE
     Route: 042

REACTIONS (4)
  - ABDOMINAL PAIN [None]
  - AORTITIS [None]
  - ARTHRALGIA [None]
  - CROHN'S DISEASE [None]
